FAERS Safety Report 14011753 (Version 2)
Quarter: 2017Q4

REPORT INFORMATION
  Report Type: Spontaneous
  Country: JP (occurrence: JP)
  Receive Date: 20170926
  Receipt Date: 20171108
  Transmission Date: 20180321
  Serious: Yes (Hospitalization)
  Sender: FDA-Public Use
  Company Number: JP-EISAI MEDICAL RESEARCH-EC-2016-020821

PATIENT
  Age: 91 Year
  Sex: Female
  Weight: 49 kg

DRUGS (5)
  1. LENVIMA [Suspect]
     Active Substance: LENVATINIB
     Indication: THYROID CANCER
     Route: 048
     Dates: start: 20160912, end: 201610
  2. LENVIMA [Suspect]
     Active Substance: LENVATINIB
     Route: 048
     Dates: start: 20161021, end: 2016
  3. LENVIMA [Suspect]
     Active Substance: LENVATINIB
     Route: 048
     Dates: start: 20170317
  4. LENVIMA [Suspect]
     Active Substance: LENVATINIB
     Route: 048
     Dates: start: 20161105, end: 201611
  5. LENVIMA [Suspect]
     Active Substance: LENVATINIB
     Route: 048
     Dates: start: 20161214, end: 20170218

REACTIONS (7)
  - Pyrexia [Recovered/Resolved]
  - Platelet count decreased [Recovering/Resolving]
  - Diarrhoea [Recovering/Resolving]
  - Hypertension [Recovering/Resolving]
  - Renal disorder [Recovered/Resolved]
  - Proteinuria [Not Recovered/Not Resolved]
  - Arthralgia [Recovered/Resolved]

NARRATIVE: CASE EVENT DATE: 20160913
